FAERS Safety Report 8238195-4 (Version None)
Quarter: 2012Q1

REPORT INFORMATION
  Report Type: 
  Country: None (occurrence: None)
  Receive Date: 20120327
  Receipt Date: 20120320
  Transmission Date: 20120608
  Serious: Yes (Other)
  Sender: FDA-Public Use
  Company Number: PHHY2012VE025528

PATIENT
  Sex: Female

DRUGS (3)
  1. BISOPROLOL FUMARATE [Concomitant]
     Indication: TACHYCARDIA
     Dosage: ONE PILL ONCE A DAY
  2. ZOLEDRONOC ACID [Suspect]
     Indication: OSTEOPOROSIS
     Dosage: UNK UKN, UNK
     Route: 042
     Dates: start: 20111101
  3. GLUCOFAGE [Concomitant]
     Indication: DIABETES MELLITUS
     Dosage: ONE PILL ONCE A DAY

REACTIONS (8)
  - PAIN IN EXTREMITY [None]
  - MONONUCLEOSIS SYNDROME [None]
  - TACHYCARDIA [None]
  - FEELING ABNORMAL [None]
  - DECREASED IMMUNE RESPONSIVENESS [None]
  - BONE NEOPLASM MALIGNANT [None]
  - ASTHENIA [None]
  - DYSSTASIA [None]
